FAERS Safety Report 4927834-9 (Version None)
Quarter: 2006Q1

REPORT INFORMATION
  Report Type: 
  Country: None (occurrence: None)
  Receive Date: 20060127
  Receipt Date: 20051111
  Transmission Date: 20060701
  Serious: Yes (Other)
  Sender: FDA-Public Use
  Company Number: 2005135410

PATIENT
  Age: 37 Year
  Sex: Male
  Weight: 136.0791 kg

DRUGS (3)
  1. LYRICA [Suspect]
     Indication: TOURETTE'S DISORDER
     Dosage: 150 MG (50 MG, BID) ORAL
     Route: 048
     Dates: start: 20050909
  2. LAMICTAL [Concomitant]
  3. KLONOPIN [Concomitant]

REACTIONS (6)
  - DIZZINESS [None]
  - DRY MOUTH [None]
  - HEADACHE [None]
  - MUSCLE TWITCHING [None]
  - PAIN IN EXTREMITY [None]
  - SLEEP DISORDER [None]
